FAERS Safety Report 9631575 (Version 1)
Quarter: 2013Q4

REPORT INFORMATION
  Report Type: Spontaneous
  Country: BR (occurrence: BR)
  Receive Date: 20131018
  Receipt Date: 20131018
  Transmission Date: 20140711
  Serious: Yes (Other)
  Sender: FDA-Public Use
  Company Number: BR-ASTELLAS-2013US010697

PATIENT
  Age: 37 Year
  Sex: 0

DRUGS (1)
  1. VESICARE [Suspect]
     Indication: HYPERTONIC BLADDER
     Dosage: 5 MG, UID/QD
     Route: 065
     Dates: start: 20130918

REACTIONS (1)
  - Gastric dilatation [Not Recovered/Not Resolved]
